FAERS Safety Report 4524273-X (Version None)
Quarter: 2004Q4

REPORT INFORMATION
  Report Type: 
  Country: None (occurrence: None)
  Receive Date: 20041119
  Receipt Date: 20040730
  Transmission Date: 20050328
  Serious: No
  Sender: FDA-Public Use
  Company Number: 208169

PATIENT
  Age: 55 Year
  Sex: Male
  Weight: 100 kg

DRUGS (3)
  1. RAPTIVA [Suspect]
     Indication: PSORIASIS
     Dosage: 0.7 MG/KG, 1/WEEK, SUBCUTANEOUS
     Route: 058
     Dates: start: 20040409
  2. LOTREL (AMLODIPINE BESYLATE, BENAZEPRIL HYDROCHLORIDE) [Concomitant]
  3. TENORETIC (ATENOLOL, CHLORTHALIDONE) [Concomitant]

REACTIONS (1)
  - PSORIASIS [None]
